FAERS Safety Report 16756025 (Version 2)
Quarter: 2019Q3

REPORT INFORMATION
  Report Type: Report from Study
  Country: US (occurrence: US)
  Receive Date: 20190829
  Receipt Date: 20190910
  Transmission Date: 20191005
  Serious: Yes (Death, Hospitalization, Other)
  Sender: FDA-Public Use
  Company Number: US-GILEAD-2019-0425505

PATIENT
  Age: 57 Year
  Sex: Male

DRUGS (11)
  1. ASPIRIN [ACETYLSALICYLIC ACID] [Concomitant]
     Active Substance: ASPIRIN
  2. SPIRONOLACTONE. [Concomitant]
     Active Substance: SPIRONOLACTONE
  3. OMEPRAZOLE. [Concomitant]
     Active Substance: OMEPRAZOLE
  4. TYLENOL [Concomitant]
     Active Substance: ACETAMINOPHEN
  5. UPTRAVI [Concomitant]
     Active Substance: SELEXIPAG
  6. AMBRISENTAN [Suspect]
     Active Substance: AMBRISENTAN
     Indication: PULMONARY ARTERIAL HYPERTENSION
     Dosage: 10 MG, QD
     Route: 065
     Dates: start: 20170415
  7. SILDENAFIL. [Concomitant]
     Active Substance: SILDENAFIL
  8. CLOPIDOGREL [Concomitant]
     Active Substance: CLOPIDOGREL BISULFATE
  9. ATORVASTATIN [Concomitant]
     Active Substance: ATORVASTATIN
  10. DIGOXIN. [Concomitant]
     Active Substance: DIGOXIN
  11. FUROSEMIDE. [Concomitant]
     Active Substance: FUROSEMIDE

REACTIONS (2)
  - Death [Fatal]
  - Life support [Not Recovered/Not Resolved]

NARRATIVE: CASE EVENT DATE: 201907
